FAERS Safety Report 5109034-5 (Version None)
Quarter: 2006Q3

REPORT INFORMATION
  Report Type: 
  Country: None (occurrence: None)
  Receive Date: 20060918
  Receipt Date: 20060829
  Transmission Date: 20061208
  Serious: Yes (Other)
  Sender: FDA-Public Use
  Company Number: US200608006391

PATIENT
  Age: 12 Year
  Sex: Female

DRUGS (4)
  1. HUMALOG [Suspect]
     Indication: DIABETES MELLITUS
     Dosage: 6 U, OTHER WITH EACH MEAL, UNK (SEE IMAGE)
     Dates: start: 19980101
  2. HUMALOG [Suspect]
     Indication: DIABETES MELLITUS
     Dosage: 6 U, OTHER WITH EACH MEAL, UNK (SEE IMAGE)
     Dates: start: 20060815
  3. LANTUS [Concomitant]
  4. LAMICTAL [Concomitant]

REACTIONS (2)
  - BLOOD GLUCOSE DECREASED [None]
  - EPILEPSY [None]
